FAERS Safety Report 6657385-5 (Version None)
Quarter: 2010Q1

REPORT INFORMATION
  Report Type: 
  Country: None (occurrence: None)
  Receive Date: 20100325
  Receipt Date: 20100317
  Transmission Date: 20100710
  Serious: Yes (Other)
  Sender: FDA-Public Use
  Company Number: DSA_42811_2010

PATIENT
  Sex: Male

DRUGS (1)
  1. XENAZINE [Suspect]
     Indication: DYSTONIA
     Dosage: (37.5 MG TID ORAL)
     Route: 048
     Dates: start: 20090101

REACTIONS (1)
  - DEMENTIA ALZHEIMER'S TYPE [None]
